FAERS Safety Report 8888118 (Version 1)
Quarter: 2012Q4

REPORT INFORMATION
  Report Type: 
  Country: US (occurrence: US)
  Receive Date: 20121106
  Receipt Date: 20121106
  Transmission Date: 20130627
  Serious: Yes (Other)
  Sender: FDA-Public Use
  Company Number: US-BAYER-2012-114303

PATIENT
  Sex: Female

DRUGS (8)
  1. BETASERON [Suspect]
     Dosage: 0.25 mg, UNK
     Route: 058
     Dates: start: 2008, end: 201210
  2. METFORMIN [Concomitant]
     Dosage: 1000 mg, UNK
  3. ACETYLSALICYLIC ACID({=100 MG) [Concomitant]
     Dosage: 81 mg, UNK
  4. LANTUS [Concomitant]
  5. MULTITABS [FERROUS FUMARATE,MINERALS NOS,VITAMINS NOS] [Concomitant]
  6. BYETTA [Concomitant]
     Dosage: 10 ?g, UNK
  7. UNITHROID [Concomitant]
     Dosage: 100 ?g, UNK
  8. PRAVACHOL [Concomitant]
     Dosage: 10 mg, UNK

REACTIONS (2)
  - Hydrocephalus [Unknown]
  - Central nervous system lesion [Unknown]
